FAERS Safety Report 8976821 (Version 1)
Quarter: 2012Q4

REPORT INFORMATION
  Report Type: 
  Country: US (occurrence: US)
  Receive Date: 20121220
  Receipt Date: 20121220
  Transmission Date: 20130627
  Serious: No
  Sender: FDA-Public Use
  Company Number: US-BIOGENIDEC-2012BI058848

PATIENT
  Age: 42 Year
  Sex: Female

DRUGS (5)
  1. AVONEX [Suspect]
     Indication: MULTIPLE SCLEROSIS
     Route: 030
     Dates: start: 20120907, end: 20121201
  2. KLONOPIN [Concomitant]
     Indication: MAJOR DEPRESSION
  3. ZOLOFT [Concomitant]
     Indication: MAJOR DEPRESSION
  4. LEVOTHYROXINE [Concomitant]
     Indication: HYPOTHYROIDISM
     Route: 048
     Dates: start: 20120128
  5. EXTRA STRENGTH TYLENOL (NOS) [Concomitant]
     Indication: PREMEDICATION
     Route: 048
     Dates: start: 20120907

REACTIONS (11)
  - Migraine [Recovered/Resolved]
  - Nausea [Recovered/Resolved]
  - Decreased appetite [Recovered/Resolved]
  - Vomiting [Recovered/Resolved]
  - Arrhythmia [Recovered/Resolved]
  - Abdominal pain [Recovered/Resolved]
  - Pain [Recovered/Resolved]
  - Chills [Recovered/Resolved]
  - Muscle spasms [Recovered/Resolved]
  - Injection site erythema [Not Recovered/Not Resolved]
  - Injection site mass [Recovered/Resolved]
